FAERS Safety Report 8438318-8 (Version None)
Quarter: 2012Q2

REPORT INFORMATION
  Report Type: 
  Country: None (occurrence: None)
  Receive Date: 20120614
  Receipt Date: 20120607
  Transmission Date: 20120825
  Serious: Yes (Other)
  Sender: FDA-Public Use
  Company Number: US-ELI_LILLY_AND_COMPANY-US201206002369

PATIENT
  Sex: Female

DRUGS (2)
  1. BYDUREON [Suspect]
     Dosage: UNK
     Route: 058
  2. BYETTA [Suspect]
     Route: 058

REACTIONS (6)
  - INJECTION SITE INFLAMMATION [None]
  - INJECTION SITE PRURITUS [None]
  - INJECTION SITE NECROSIS [None]
  - INJECTION SITE ERYTHEMA [None]
  - INJECTION SITE WARMTH [None]
  - INJECTION SITE NODULE [None]
